FAERS Safety Report 20770954 (Version 2)
Quarter: 2022Q2

REPORT INFORMATION
  Report Type: Spontaneous
  Country: US (occurrence: US)
  Receive Date: 20220429
  Receipt Date: 20220608
  Transmission Date: 20220721
  Serious: No
  Sender: FDA-Public Use
  Company Number: US-PFIZER INC-202200581932

PATIENT
  Age: 53 Year
  Sex: Female

DRUGS (2)
  1. ESTRING [Suspect]
     Active Substance: ESTRADIOL
     Indication: Menopausal symptoms
     Dosage: 2MG, ONE RING FOR 90 DAYS
     Dates: start: 20211104
  2. ESTRING [Suspect]
     Active Substance: ESTRADIOL
     Dosage: 2 MG
     Dates: start: 20220315

REACTIONS (1)
  - Device ineffective [Unknown]

NARRATIVE: CASE EVENT DATE: 20220101
